FAERS Safety Report 25436868 (Version 3)
Quarter: 2025Q4

REPORT INFORMATION
  Report Type: Spontaneous
  Country: US (occurrence: US)
  Receive Date: 20250615
  Receipt Date: 20251117
  Transmission Date: 20260118
  Serious: No
  Sender: SANOFI AVENTIS
  Company Number: US-SA-2025SA167870

PATIENT
  Age: 47 Year
  Sex: Female
  Weight: 73.03 kg

DRUGS (2)
  1. CAPRELSA [Suspect]
     Active Substance: VANDETANIB
     Indication: Thyroid cancer
     Dosage: 300 MG, QD
     Route: 048
     Dates: start: 20250418
  2. CAPRELSA [Suspect]
     Active Substance: VANDETANIB
     Indication: Neuroendocrine tumour

REACTIONS (5)
  - Tumour marker increased [Unknown]
  - Weight increased [Unknown]
  - Diarrhoea [Unknown]
  - Nausea [Unknown]
  - Rash [Unknown]

NARRATIVE: CASE EVENT DATE: 20250101
